FAERS Safety Report 24673139 (Version 2)
Quarter: 2025Q1

REPORT INFORMATION
  Report Type: Spontaneous
  Country: US (occurrence: US)
  Receive Date: 20241128
  Receipt Date: 20250106
  Transmission Date: 20250408
  Serious: No
  Sender: Unknown Manufacturer
  Company Number: US-862174955-ML2024-06108

PATIENT
  Age: 50 Year
  Sex: Male
  Weight: 71 kg

DRUGS (2)
  1. CROMOLYN SODIUM [Suspect]
     Active Substance: CROMOLYN SODIUM
     Indication: Mast cell activation syndrome
     Dosage: STRENGTH: 100MG/5ML?DOSE: ONCE BEFORE EVERY MEAL AND ONCE BEFORE BED
     Route: 048
     Dates: start: 20241114
  2. CROMOLYN SODIUM [Suspect]
     Active Substance: CROMOLYN SODIUM
     Dosage: STRENGTH: 100MG/5ML?DOSE: ONCE BEFORE EVERY MEAL AND ONCE BEFORE BED
     Route: 048

REACTIONS (7)
  - Throat irritation [Not Recovered/Not Resolved]
  - Dyspepsia [Not Recovered/Not Resolved]
  - Withdrawal syndrome [Not Recovered/Not Resolved]
  - Product packaging issue [Unknown]
  - Product contamination [Unknown]
  - Product quality issue [Unknown]
  - Therapy cessation [Unknown]
